FAERS Safety Report 18129638 (Version 1)
Quarter: 2020Q3

REPORT INFORMATION
  Report Type: Spontaneous
  Country: US (occurrence: US)
  Receive Date: 20200810
  Receipt Date: 20200810
  Transmission Date: 20201103
  Serious: No
  Sender: FDA-Public Use
  Company Number: None

PATIENT
  Age: 47 Year
  Sex: Female
  Weight: 76.5 kg

DRUGS (2)
  1. TECNU RASH RELIEF SPRAY [HOMEOPATHICS] [Suspect]
     Active Substance: HOMEOPATHICS
     Indication: DERMATITIS CONTACT
     Dates: start: 20200801, end: 20200810
  2. IRON [Concomitant]
     Active Substance: IRON

REACTIONS (2)
  - Mental impairment [None]
  - Balance disorder [None]

NARRATIVE: CASE EVENT DATE: 20200810
